FAERS Safety Report 8814336 (Version 1)
Quarter: 2012Q4

REPORT INFORMATION
  Report Type: 
  Country: TH (occurrence: TH)
  Receive Date: 20120928
  Receipt Date: 20120928
  Transmission Date: 20130627
  Serious: Yes (Death)
  Sender: FDA-Public Use
  Company Number: PHHY2009TH48623

PATIENT
  Age: 17 Year
  Sex: Male
  Weight: 48 kg

DRUGS (2)
  1. GLIVEC [Suspect]
     Indication: CHRONIC MYELOID LEUKAEMIA
     Dosage: 800 mg, daily
     Route: 048
     Dates: start: 20090309, end: 20090918
  2. UNSPECIFIED INGREDIENT [Suspect]

REACTIONS (4)
  - Haemorrhagic diathesis [Fatal]
  - Cerebral haemorrhage [Fatal]
  - Chronic myeloid leukaemia [Fatal]
  - Malignant neoplasm progression [Fatal]
